FAERS Safety Report 15962565 (Version 1)
Quarter: 2019Q1

REPORT INFORMATION
  Report Type: Report from Study
  Country: GB (occurrence: GB)
  Receive Date: 20190214
  Receipt Date: 20190214
  Transmission Date: 20190417
  Serious: Yes (Death)
  Sender: FDA-Public Use
  Company Number: PHHY2019GB035153

PATIENT
  Sex: Female

DRUGS (1)
  1. COSENTYX [Suspect]
     Active Substance: SECUKINUMAB
     Indication: PRODUCT USED FOR UNKNOWN INDICATION
     Dosage: 150 MG, QW (WEEKS 0, 1, 2, 3 AND 4 THEN ONCE MONTHLY FROM WEEK 4 AS DIRECTED)
     Route: 058
     Dates: start: 20180727

REACTIONS (1)
  - Death [Fatal]
